FAERS Safety Report 11312883 (Version 1)
Quarter: 2015Q3

REPORT INFORMATION
  Report Type: Spontaneous
  Country: US (occurrence: US)
  Receive Date: 20150727
  Receipt Date: 20150727
  Transmission Date: 20151125
  Serious: No
  Sender: FDA-Public Use
  Company Number: US-ABBVIE-15P-163-1371911-00

PATIENT
  Sex: Female
  Weight: 49.94 kg

DRUGS (3)
  1. SYNTHROID [Suspect]
     Active Substance: LEVOTHYROXINE SODIUM
     Indication: HYPOTHYROIDISM
     Dosage: DURATION LESS THAN 1 MONTH
     Route: 048
     Dates: start: 2013, end: 2013
  2. SYNTHROID [Suspect]
     Active Substance: LEVOTHYROXINE SODIUM
     Indication: HYPOTHYROIDISM
     Route: 048
     Dates: start: 2014
  3. ESTRADIOL. [Concomitant]
     Active Substance: ESTRADIOL
     Indication: PRODUCT USED FOR UNKNOWN INDICATION
     Route: 048

REACTIONS (9)
  - Frequent bowel movements [Recovered/Resolved]
  - Abdominal discomfort [Recovered/Resolved]
  - Colitis [Recovered/Resolved]
  - Abdominal discomfort [Recovered/Resolved]
  - Frequent bowel movements [Recovered/Resolved]
  - Painful defaecation [Recovered/Resolved]
  - Product quality issue [Not Recovered/Not Resolved]
  - Colitis [Recovered/Resolved]
  - Painful defaecation [Recovered/Resolved]

NARRATIVE: CASE EVENT DATE: 2014
